FAERS Safety Report 5625698-1 (Version None)
Quarter: 2008Q1

REPORT INFORMATION
  Report Type: 
  Country: None (occurrence: None)
  Receive Date: 20080214
  Receipt Date: 20080206
  Transmission Date: 20080703
  Serious: Yes (Other)
  Sender: FDA-Public Use
  Company Number: US-JNJFOC-20080201472

PATIENT
  Sex: Female
  Weight: 75.75 kg

DRUGS (14)
  1. REMICADE [Suspect]
     Indication: RHEUMATOID ARTHRITIS
     Route: 042
  2. PREDNISONE TAB [Concomitant]
     Indication: RHEUMATOID ARTHRITIS
  3. MTX [Concomitant]
     Indication: RHEUMATOID ARTHRITIS
  4. MOBIC [Concomitant]
     Indication: RHEUMATOID ARTHRITIS
  5. NEXIUM [Concomitant]
     Indication: GASTROOESOPHAGEAL REFLUX DISEASE
  6. DIOVAN [Concomitant]
     Indication: HYPERTENSION
  7. FOLIC ACID [Concomitant]
  8. HYDROCODONE BITARTRATE [Concomitant]
     Indication: PAIN
  9. PROVIGIL [Concomitant]
     Indication: FATIGUE
  10. CYMBALTA [Concomitant]
     Indication: DEPRESSION
  11. LIMICTAL [Concomitant]
     Indication: DEPRESSION
  12. LITHIUM CARBONATE [Concomitant]
     Indication: DEPRESSION
  13. IMPIRAMINE [Concomitant]
     Indication: DEPRESSION
  14. BONIVA [Concomitant]
     Indication: OSTEOPOROSIS

REACTIONS (1)
  - LIGAMENT RUPTURE [None]
